FAERS Safety Report 9800333 (Version 3)
Quarter: 2014Q1

REPORT INFORMATION
  Report Type: Spontaneous
  Country: CN (occurrence: CN)
  Receive Date: 20140106
  Receipt Date: 20140225
  Transmission Date: 20141002
  Serious: Yes (Death)
  Sender: FDA-Public Use
  Company Number: CN-PFIZER INC-2014000314

PATIENT
  Age: 87 Year
  Sex: Male
  Weight: 54 kg

DRUGS (2)
  1. LIPITOR [Suspect]
     Indication: BLOOD CHOLESTEROL INCREASED
     Dosage: 10 MG, 1X/DAY
     Route: 048
     Dates: start: 20131203, end: 20131214
  2. ALLOPURINOL [Suspect]
     Indication: HYPERURICAEMIA
     Dosage: 0.1 G, 3X/DAY
     Route: 048
     Dates: start: 20131214, end: 20131221

REACTIONS (3)
  - Hepatic function abnormal [Fatal]
  - Disseminated intravascular coagulation [Fatal]
  - Multi-organ failure [Fatal]
